FAERS Safety Report 6075288-4 (Version None)
Quarter: 2009Q1

REPORT INFORMATION
  Report Type: 
  Country: None (occurrence: None)
  Receive Date: 20090212
  Receipt Date: 20090205
  Transmission Date: 20090719
  Serious: Yes (Disabling)
  Sender: FDA-Public Use
  Company Number: PHHY2009FI04114

PATIENT
  Age: 76 Year
  Sex: Male

DRUGS (2)
  1. STALEVO 100 [Suspect]
     Indication: PARKINSON'S DISEASE
     Dosage: UNK
     Route: 048
  2. EXELON [Concomitant]

REACTIONS (4)
  - DYSPHAGIA [None]
  - TOOTH EROSION [None]
  - TOOTH EXTRACTION [None]
  - WRONG TECHNIQUE IN DRUG USAGE PROCESS [None]
